FAERS Safety Report 4563831-3 (Version None)
Quarter: 2005Q1

REPORT INFORMATION
  Report Type: 
  Country: None (occurrence: None)
  Receive Date: 20050125
  Receipt Date: 20050112
  Transmission Date: 20050727
  Serious: Yes (Death, Life-Threatening, Hospitalization, Other)
  Sender: FDA-Public Use
  Company Number: 2005011818

PATIENT
  Age: 89 Year
  Sex: Male

DRUGS (6)
  1. FOSPHENYTOIN SODIUM [Suspect]
     Indication: EPILEPSY
     Dates: start: 20040923, end: 20040927
  2. WARFARIN SODIUM [Suspect]
     Indication: ATRIAL FIBRILLATION
     Dosage: (2.5 MG), ORAL
     Route: 048
     Dates: start: 19880101, end: 20040922
  3. BACTRIM (SLUFAMETHOXAZOLE, TRIMETHOPRIM) [Concomitant]
     Indication: PYREXIA
     Dosage: 20 ML (20 MO, 1 IN 1 D)
     Dates: start: 20040923
  4. SOTALOL (SOTALOLO) [Concomitant]
  5. ALL OTHER THERAPEUTIC PRODUCTS (ALL OTHER THERAPEUTIC PRODUCTS) [Concomitant]
  6. TOLTERODINE TARTRATE [Concomitant]

REACTIONS (9)
  - BLOOD URINE PRESENT [None]
  - C-REACTIVE PROTEIN INCREASED [None]
  - DRUG INTERACTION [None]
  - EPILEPSY [None]
  - GENERAL PHYSICAL HEALTH DETERIORATION [None]
  - HAEMOGLOBIN DECREASED [None]
  - HAEMORRHAGE [None]
  - INTERNATIONAL NORMALISED RATIO INCREASED [None]
  - PYREXIA [None]
